FAERS Safety Report 23067869 (Version 1)
Quarter: 2023Q4

REPORT INFORMATION
  Report Type: Spontaneous
  Country: NZ (occurrence: NZ)
  Receive Date: 20231016
  Receipt Date: 20231016
  Transmission Date: 20240109
  Serious: Yes (Hospitalization, Other)
  Sender: FDA-Public Use
  Company Number: None

PATIENT
  Age: 72 Year
  Sex: Male

DRUGS (1)
  1. LEVETIRACETAM [Suspect]
     Active Substance: LEVETIRACETAM
     Indication: Epilepsy
     Dosage: 1 GRAM, DAILY
     Route: 048
     Dates: start: 20220228, end: 20220308

REACTIONS (2)
  - Acute kidney injury [Unknown]
  - Rash erythematous [Unknown]

NARRATIVE: CASE EVENT DATE: 20220306
